FAERS Safety Report 11871685 (Version 3)
Quarter: 2016Q3

REPORT INFORMATION
  Report Type: Spontaneous
  Country: IT (occurrence: IT)
  Receive Date: 20151228
  Receipt Date: 20160720
  Transmission Date: 20161109
  Serious: Yes (Hospitalization)
  Sender: FDA-Public Use
  Company Number: IT-JNJFOC-20151219834

PATIENT
  Age: 22 Year
  Sex: Male

DRUGS (3)
  1. SERENASE [Suspect]
     Active Substance: HALOPERIDOL
     Indication: SEDATION
     Route: 030
     Dates: start: 20150318, end: 20150321
  2. ENTUMIN [Suspect]
     Active Substance: CLOTHIAPINE
     Indication: SEDATION
     Route: 030
     Dates: start: 20150318
  3. DELORAZEPAM [Concomitant]
     Active Substance: DELORAZEPAM
     Indication: SEDATION
     Route: 030
     Dates: start: 20150318, end: 20150321

REACTIONS (7)
  - Extrapyramidal disorder [Recovered/Resolved]
  - Rhabdomyolysis [Recovered/Resolved]
  - Urinary retention [Recovered/Resolved]
  - Dystonia [Recovered/Resolved]
  - Blood creatine phosphokinase increased [Recovered/Resolved]
  - Product use issue [Unknown]
  - Off label use [Unknown]

NARRATIVE: CASE EVENT DATE: 20150321
